FAERS Safety Report 9788264 (Version 2)
Quarter: 2014Q1

REPORT INFORMATION
  Report Type: Spontaneous
  Country: SI (occurrence: SI)
  Receive Date: 20131230
  Receipt Date: 20140113
  Transmission Date: 20141002
  Serious: Yes (Hospitalization, Other)
  Sender: FDA-Public Use
  Company Number: SI-AMGEN-SVNSP2013090517

PATIENT
  Age: 75 Year
  Sex: Female

DRUGS (3)
  1. PROLIA [Suspect]
     Indication: OSTEOPOROSIS
     Dosage: UNK
     Route: 065
     Dates: start: 20130601
  2. MEDROL                             /00049601/ [Concomitant]
  3. METHOTREXATE [Concomitant]

REACTIONS (11)
  - Intestinal haemorrhage [Unknown]
  - Normochromic normocytic anaemia [Unknown]
  - Abdominal pain upper [Unknown]
  - Oral infection [Unknown]
  - Mouth haemorrhage [Unknown]
  - Arthritis [Unknown]
  - Bone pain [Unknown]
  - Hypoacusis [Not Recovered/Not Resolved]
  - Tooth loss [Unknown]
  - Mobility decreased [Unknown]
  - Weight decreased [Unknown]
